FAERS Safety Report 24769804 (Version 1)
Quarter: 2024Q4

REPORT INFORMATION
  Report Type: Report from Study
  Country: DE (occurrence: DE)
  Receive Date: 20241224
  Receipt Date: 20241224
  Transmission Date: 20250115
  Serious: Yes (Hospitalization, Other)
  Sender: SANDOZ
  Company Number: DE-002147023-NVSC2023DE126725

PATIENT
  Sex: Male
  Weight: 86 kg

DRUGS (2)
  1. SOMATROPIN [Suspect]
     Active Substance: SOMATROPIN
     Indication: Growth hormone deficiency
     Dosage: 0.1 MG, QOD
     Route: 058
     Dates: start: 20071204, end: 20230510
  2. HYDROCORTISONE [Concomitant]
     Active Substance: HYDROCORTISONE
     Indication: Product used for unknown indication
     Dosage: PERIINTERVENTIONAL INTRAVENOUS
     Route: 042

REACTIONS (8)
  - Angina pectoris [Recovering/Resolving]
  - Acute myocardial infarction [Recovering/Resolving]
  - Diabetes insipidus [Unknown]
  - Hypertension [Not Recovered/Not Resolved]
  - Haemorrhoids [Not Recovered/Not Resolved]
  - Depression [Unknown]
  - Psoriasis [Unknown]
  - Benign prostatic hyperplasia [Unknown]

NARRATIVE: CASE EVENT DATE: 20191201
